FAERS Safety Report 24297268 (Version 2)
Quarter: 2025Q2

REPORT INFORMATION
  Report Type: Spontaneous
  Country: IT (occurrence: IT)
  Receive Date: 20240909
  Receipt Date: 20250404
  Transmission Date: 20250716
  Serious: Yes (Other)
  Sender: AUROBINDO
  Company Number: IT-EMA-DD-20190719-jain_h1-141654

PATIENT
  Age: 50 Year
  Sex: Male

DRUGS (48)
  1. EMTRICITABINE\TENOFOVIR DISOPROXIL [Suspect]
     Active Substance: EMTRICITABINE\TENOFOVIR DISOPROXIL
     Indication: Pneumocystis jirovecii infection
     Route: 065
  2. EMTRICITABINE\TENOFOVIR DISOPROXIL [Suspect]
     Active Substance: EMTRICITABINE\TENOFOVIR DISOPROXIL
     Indication: HIV infection
  3. EMTRICITABINE\TENOFOVIR DISOPROXIL [Suspect]
     Active Substance: EMTRICITABINE\TENOFOVIR DISOPROXIL
     Indication: Acquired immunodeficiency syndrome
  4. NIVOLUMAB [Suspect]
     Active Substance: NIVOLUMAB
     Indication: Hodgkin^s disease
     Dosage: 3 MILLIGRAM/KILOGRAM, BIWEEKLY
     Route: 065
  5. NIVOLUMAB [Suspect]
     Active Substance: NIVOLUMAB
     Indication: Epstein-Barr virus associated lymphoma
  6. RALTEGRAVIR [Suspect]
     Active Substance: RALTEGRAVIR
     Indication: Acquired immunodeficiency syndrome
     Route: 065
  7. CISPLATIN [Concomitant]
     Active Substance: CISPLATIN
     Indication: Epstein-Barr virus associated lymphoma
     Route: 065
  8. CISPLATIN [Concomitant]
     Active Substance: CISPLATIN
     Indication: Metastatic lymphoma
     Route: 065
  9. CISPLATIN [Concomitant]
     Active Substance: CISPLATIN
     Indication: Hodgkin^s disease
  10. ADRIAMYCIN [Concomitant]
     Active Substance: DOXORUBICIN HYDROCHLORIDE
     Indication: Hodgkin^s disease
     Route: 065
  11. ADRIAMYCIN [Concomitant]
     Active Substance: DOXORUBICIN HYDROCHLORIDE
     Indication: Epstein-Barr virus associated lymphoma
  12. VINBLASTINE [Concomitant]
     Active Substance: VINBLASTINE
     Indication: Hodgkin^s disease
     Route: 065
  13. VINBLASTINE [Concomitant]
     Active Substance: VINBLASTINE
     Indication: Epstein-Barr virus associated lymphoma
  14. BENDAMUSTINE [Concomitant]
     Active Substance: BENDAMUSTINE
     Indication: Epstein-Barr virus associated lymphoma
     Route: 065
  15. BENDAMUSTINE [Concomitant]
     Active Substance: BENDAMUSTINE
     Indication: Hodgkin^s disease
  16. PROCARBAZINE [Concomitant]
     Active Substance: PROCARBAZINE
     Indication: Epstein-Barr virus associated lymphoma
     Route: 065
  17. PROCARBAZINE [Concomitant]
     Active Substance: PROCARBAZINE
     Indication: Hodgkin^s disease
     Route: 065
  18. CYTARABINE [Concomitant]
     Active Substance: CYTARABINE
     Indication: Metastatic lymphoma
     Route: 065
  19. CYTARABINE [Concomitant]
     Active Substance: CYTARABINE
     Indication: Epstein-Barr virus associated lymphoma
     Route: 065
  20. CYTARABINE [Concomitant]
     Active Substance: CYTARABINE
     Indication: Hodgkin^s disease
     Route: 065
  21. VINORELBINE TARTRATE [Concomitant]
     Active Substance: VINORELBINE TARTRATE
     Indication: Epstein-Barr virus associated lymphoma
     Route: 065
  22. FOTEMUSTINE [Concomitant]
     Active Substance: FOTEMUSTINE
     Indication: Epstein-Barr virus associated lymphoma
     Route: 065
  23. FOTEMUSTINE [Concomitant]
     Active Substance: FOTEMUSTINE
     Indication: Hodgkin^s disease
  24. DACARBAZINE [Concomitant]
     Active Substance: DACARBAZINE
     Indication: Epstein-Barr virus associated lymphoma
     Route: 065
  25. DACARBAZINE [Concomitant]
     Active Substance: DACARBAZINE
     Indication: Hodgkin^s disease
  26. BRENTUXIMAB VEDOTIN [Concomitant]
     Active Substance: BRENTUXIMAB VEDOTIN
     Indication: Metastatic lymphoma
     Route: 065
  27. BRENTUXIMAB VEDOTIN [Concomitant]
     Active Substance: BRENTUXIMAB VEDOTIN
     Indication: Hodgkin^s disease
  28. BRENTUXIMAB VEDOTIN [Concomitant]
     Active Substance: BRENTUXIMAB VEDOTIN
     Indication: Epstein-Barr virus associated lymphoma
  29. VINORELBINE [Concomitant]
     Active Substance: VINORELBINE TARTRATE
     Indication: Hodgkin^s disease
     Route: 065
  30. VINCRISTINE [Concomitant]
     Active Substance: VINCRISTINE
     Indication: Hodgkin^s disease
     Route: 065
  31. VINCRISTINE [Concomitant]
     Active Substance: VINCRISTINE
     Indication: Epstein-Barr virus associated lymphoma
  32. ETOPOSIDE [Concomitant]
     Active Substance: ETOPOSIDE
     Indication: Epstein-Barr virus associated lymphoma
     Route: 065
     Dates: start: 201509
  33. ETOPOSIDE [Concomitant]
     Active Substance: ETOPOSIDE
     Indication: Hodgkin^s disease
     Route: 065
  34. CYCLOPHOSPHAMIDE [Concomitant]
     Active Substance: CYCLOPHOSPHAMIDE
     Indication: Epstein-Barr virus associated lymphoma
     Route: 065
  35. CYCLOPHOSPHAMIDE [Concomitant]
     Active Substance: CYCLOPHOSPHAMIDE
     Indication: Hodgkin^s disease
     Route: 065
  36. BLEOMYCIN [Concomitant]
     Active Substance: BLEOMYCIN SULFATE
     Indication: Hodgkin^s disease
     Route: 065
  37. BLEOMYCIN [Concomitant]
     Active Substance: BLEOMYCIN SULFATE
     Indication: Epstein-Barr virus associated lymphoma
  38. GEMCITABINE [Concomitant]
     Active Substance: GEMCITABINE
     Indication: Hodgkin^s disease
     Route: 065
  39. GEMCITABINE [Concomitant]
     Active Substance: GEMCITABINE
     Indication: Epstein-Barr virus associated lymphoma
  40. DEXAMETHASONE [Concomitant]
     Active Substance: DEXAMETHASONE
     Indication: Hodgkin^s disease
     Route: 065
  41. DEXAMETHASONE [Concomitant]
     Active Substance: DEXAMETHASONE
     Indication: Metastatic lymphoma
     Route: 065
  42. DEXAMETHASONE [Concomitant]
     Active Substance: DEXAMETHASONE
     Indication: Epstein-Barr virus associated lymphoma
  43. DOXORUBICIN [Concomitant]
     Active Substance: DOXORUBICIN
     Indication: Hodgkin^s disease
     Route: 065
  44. DOXORUBICIN [Concomitant]
     Active Substance: DOXORUBICIN
     Indication: Epstein-Barr virus associated lymphoma
  45. PREDNISONE [Concomitant]
     Active Substance: PREDNISONE
     Indication: Epstein-Barr virus associated lymphoma
     Route: 065
  46. PREDNISONE [Concomitant]
     Active Substance: PREDNISONE
     Indication: Hodgkin^s disease
     Route: 065
  47. MELPHALAN [Concomitant]
     Active Substance: MELPHALAN
     Indication: Epstein-Barr virus associated lymphoma
     Route: 065
  48. MELPHALAN [Concomitant]
     Active Substance: MELPHALAN
     Indication: Hodgkin^s disease

REACTIONS (2)
  - Neuropathy peripheral [Unknown]
  - Thrombocytopenia [Recovered/Resolved]
